FAERS Safety Report 9735688 (Version 1)
Quarter: 2013Q4

REPORT INFORMATION
  Report Type: Report from Study
  Country: CL (occurrence: CL)
  Receive Date: 20131206
  Receipt Date: 20131206
  Transmission Date: 20140711
  Serious: Yes (Death)
  Sender: FDA-Public Use
  Company Number: PHHY2013CL142170

PATIENT
  Age: 64 Year
  Sex: Male

DRUGS (1)
  1. EXFORGE [Suspect]

REACTIONS (1)
  - Pneumonitis [Fatal]
